FAERS Safety Report 18461491 (Version 1)
Quarter: 2020Q4

REPORT INFORMATION
  Report Type: Spontaneous
  Country: DE (occurrence: DE)
  Receive Date: 20201104
  Receipt Date: 20201104
  Transmission Date: 20210114
  Serious: Yes (Hospitalization)
  Sender: FDA-Public Use
  Company Number: DE-ACCORD-207258

PATIENT
  Age: 76 Year
  Sex: Female

DRUGS (9)
  1. LEVOTHYROXINE. [Concomitant]
     Active Substance: LEVOTHYROXINE
     Dosage: 100 MCG, 1-0-0-0, TABLET
     Route: 048
  2. TINZAPARIN/TINZAPARIN SODIUM [Suspect]
     Active Substance: TINZAPARIN SODIUM
     Indication: PRODUCT USED FOR UNKNOWN INDICATION
     Dosage: 3500 IU, 1-0-0-0, AMPOULES
     Route: 058
  3. COLECALCIFEROL [Concomitant]
     Active Substance: CHOLECALCIFEROL
     Dosage: 20.000 IU / MONTH, 1X
     Route: 048
  4. ACETYLSALICYLIC ACID [Concomitant]
     Active Substance: ASPIRIN
     Dosage: 100 MG, 0-1-0-0, TABLET
     Route: 048
  5. METHOTREXATE. [Suspect]
     Active Substance: METHOTREXATE
     Indication: PRODUCT USED FOR UNKNOWN INDICATION
     Dosage: 15 MG, WEDNESDAYS, AMPOULES
     Route: 058
  6. TEBONIN [Concomitant]
     Active Substance: GINKGO
     Dosage: STRENGTH:CONCENTRATE 240 MG, 240MG,1-0-0-0
     Route: 048
  7. METAMIZOLE SODIUM [Concomitant]
     Active Substance: METAMIZOLE SODIUM
     Dosage: 1 G, 1-1-1-1, TABLET
     Route: 048
  8. ATORVASTATIN/ATORVASTATIN CALCIUM [Concomitant]
     Active Substance: ATORVASTATIN CALCIUM
     Dosage: 40 MG, 0-0-1-0, TABLET
     Route: 048
  9. FOLIC ACID. [Concomitant]
     Active Substance: FOLIC ACID
     Dosage: 5 MG, THURSDAYS, TABLETS
     Route: 048

REACTIONS (5)
  - Abdominal distension [Unknown]
  - Ulcer [Unknown]
  - Abdominal pain [Unknown]
  - Condition aggravated [Unknown]
  - Nausea [Unknown]
